FAERS Safety Report 10558533 (Version 1)
Quarter: 2014Q4

REPORT INFORMATION
  Report Type: Spontaneous
  Country: FR (occurrence: FR)
  Receive Date: 20141031
  Receipt Date: 20141031
  Transmission Date: 20150529
  Serious: Yes (Hospitalization, Other)
  Sender: FDA-Public Use
  Company Number: FR-PFIZER INC-2014296115

PATIENT
  Age: 65 Year
  Sex: Male

DRUGS (11)
  1. FRAXIPARINE [Concomitant]
     Active Substance: NADROPARIN CALCIUM
     Dosage: 1 DF, DAILY
     Route: 058
     Dates: start: 20140711
  2. LOXAPAC [Suspect]
     Active Substance: LOXAPINE SUCCINATE
     Dosage: 20 GTT, 3X/DAY
     Route: 048
     Dates: start: 20140709, end: 20140709
  3. RISPERDAL [Suspect]
     Active Substance: RISPERIDONE
     Dosage: 4 MG, 1X/DAY
     Route: 048
     Dates: start: 20140709, end: 20140711
  4. XANAX [Suspect]
     Active Substance: ALPRAZOLAM
     Dosage: 0.5 MG, 4X/DAY
     Route: 048
     Dates: start: 201405
  5. TRANSIPEG [Concomitant]
     Active Substance: POLYETHYLENE GLYCOL 3350
     Dosage: 5.9 G, DAILY
     Route: 048
     Dates: start: 20140710, end: 20140712
  6. MIRTAZAPINE. [Suspect]
     Active Substance: MIRTAZAPINE
     Dosage: 30 MG, 1X/DAY
     Route: 048
     Dates: start: 20140708
  7. SEROPLEX [Suspect]
     Active Substance: ESCITALOPRAM OXALATE
     Dosage: UNK
     Dates: start: 201405, end: 20140708
  8. RISPERDAL [Suspect]
     Active Substance: RISPERIDONE
     Indication: DEPRESSION
     Dosage: 2 MG, 1X/DAY
     Route: 048
     Dates: start: 20140708, end: 20140708
  9. LANSOYL [Concomitant]
     Active Substance: MINERAL OIL
     Dosage: UNK
     Route: 048
  10. LOXAPAC [Suspect]
     Active Substance: LOXAPINE SUCCINATE
     Dosage: 45 GTT, DAILY
     Route: 048
     Dates: start: 20140710
  11. NOCTAMID [Suspect]
     Active Substance: LORMETAZEPAM
     Dosage: 2 MG, DAILY
     Route: 048
     Dates: start: 20140708

REACTIONS (8)
  - Tachycardia [Recovered/Resolved]
  - Treatment failure [Recovered/Resolved]
  - Constipation [Recovered/Resolved]
  - Major depression [Recovering/Resolving]
  - Fall [Recovered/Resolved]
  - Orthostatic hypotension [Recovered/Resolved]
  - Malaise [Recovered/Resolved]
  - Gastrointestinal sounds abnormal [Recovered/Resolved]

NARRATIVE: CASE EVENT DATE: 2014
